FAERS Safety Report 7898546-7 (Version None)
Quarter: 2011Q4

REPORT INFORMATION
  Report Type: 
  Country: None (occurrence: None)
  Receive Date: 20111103
  Receipt Date: 20111024
  Transmission Date: 20120403
  Serious: Yes (Hospitalization, Disabling)
  Sender: FDA-Public Use
  Company Number: 2011PV000016

PATIENT
  Age: 68 Year
  Sex: Female

DRUGS (5)
  1. DEPOCYT [Suspect]
     Indication: CHRONIC LYMPHOCYTIC LEUKAEMIA
     Dosage: ;QOW;INTH
     Route: 037
     Dates: start: 20101229, end: 20110221
  2. BROAD SPECTRUM ANTIBIOTICS [Concomitant]
  3. RITUXIMAB [Concomitant]
  4. FLUDARABINE PHOSPHATE [Concomitant]
  5. CYCLOPHOSPHAMIDE [Concomitant]

REACTIONS (13)
  - MOTOR DYSFUNCTION [None]
  - PARAESTHESIA [None]
  - NEOPLASM PROGRESSION [None]
  - FUNCTIONAL GASTROINTESTINAL DISORDER [None]
  - SENSORY LOSS [None]
  - PARALYSIS [None]
  - SENSORIMOTOR DISORDER [None]
  - BLADDER DYSFUNCTION [None]
  - CONDITION AGGRAVATED [None]
  - CHRONIC LYMPHOCYTIC LEUKAEMIA [None]
  - PARAPLEGIA [None]
  - MUSCLE SPASMS [None]
  - INTRACRANIAL PRESSURE INCREASED [None]
